FAERS Safety Report 22776284 (Version 4)
Quarter: 2023Q4

REPORT INFORMATION
  Report Type: Report from Study
  Country: CA (occurrence: CA)
  Receive Date: 20230802
  Receipt Date: 20231220
  Transmission Date: 20240110
  Serious: Yes (Other)
  Sender: FDA-Public Use
  Company Number: CA-TAKEDA-2023TUS075200

PATIENT
  Sex: Female

DRUGS (1)
  1. VEDOLIZUMAB [Suspect]
     Active Substance: VEDOLIZUMAB
     Indication: Crohn^s disease
     Dosage: 300 MILLIGRAM
     Route: 042
     Dates: start: 20230630

REACTIONS (5)
  - Crohn^s disease [Not Recovered/Not Resolved]
  - Eye pruritus [Unknown]
  - Lip blister [Unknown]
  - Arthralgia [Unknown]
  - Fatigue [Unknown]
